FAERS Safety Report 7346015-5 (Version None)
Quarter: 2011Q1

REPORT INFORMATION
  Report Type: 
  Country: None (occurrence: None)
  Receive Date: 20110311
  Receipt Date: 20110224
  Transmission Date: 20110831
  Serious: Yes (Hospitalization, Other)
  Sender: FDA-Public Use
  Company Number: US-RANBAXY-2011RR-42744

PATIENT
  Sex: Male

DRUGS (6)
  1. LEVAQUIN [Suspect]
     Dosage: 500 MG, UNK
     Dates: start: 20070101
  2. LEVAQUIN [Suspect]
     Dosage: 500 MG, UNK
     Dates: start: 20080101
  3. LEVAQUIN [Suspect]
     Indication: CYSTITIS
     Dosage: UNK
     Route: 048
     Dates: start: 20080507, end: 20080513
  4. LEVAQUIN [Suspect]
     Dosage: UNK
     Dates: start: 20050101
  5. LEVAQUIN [Suspect]
     Indication: BACTERIAL INFECTION
     Dosage: UNK
     Dates: start: 20060101
  6. CIPROFLOXACIN [Suspect]

REACTIONS (5)
  - TRIGGER FINGER [None]
  - TENDON RUPTURE [None]
  - MUSCLE RUPTURE [None]
  - BURSITIS [None]
  - TENOSYNOVITIS [None]
